FAERS Safety Report 10563524 (Version 1)
Quarter: 2014Q4

REPORT INFORMATION
  Report Type: Spontaneous
  Country: US (occurrence: None)
  Receive Date: 20141103
  Receipt Date: 20141103
  Transmission Date: 20150529
  Serious: Yes (Disabling)
  Sender: FDA-Public Use
  Company Number: None

PATIENT
  Age: 61 Year
  Sex: Female

DRUGS (2)
  1. NITROFURANTOIN 100 MG [Suspect]
     Active Substance: NITROFURANTOIN
     Indication: CYSTITIS
     Dosage: SEVERAL MONTHS, ONE, AT BEDTIME, TAKEN BY MOUTH
     Route: 048
  2. NITROFURANTOIN 100 MG [Suspect]
     Active Substance: NITROFURANTOIN
     Indication: PROPHYLAXIS
     Dosage: SEVERAL MONTHS, ONE, AT BEDTIME, TAKEN BY MOUTH
     Route: 048

REACTIONS (1)
  - Hepatotoxicity [None]
